FAERS Safety Report 7099597-5 (Version None)
Quarter: 2010Q4

REPORT INFORMATION
  Report Type: 
  Country: None (occurrence: None)
  Receive Date: 20101112
  Receipt Date: 20081205
  Transmission Date: 20110411
  Serious: No
  Sender: FDA-Public Use
  Company Number: US-KINGPHARMUSA00001-K200801384

PATIENT
  Sex: Female

DRUGS (1)
  1. LEVOXYL [Suspect]
     Indication: BASEDOW'S DISEASE
     Dosage: UNK
     Route: 048

REACTIONS (6)
  - CHEST PAIN [None]
  - FEELING JITTERY [None]
  - HEADACHE [None]
  - HYPERTHYROIDISM [None]
  - NIGHTMARE [None]
  - PAIN [None]
